FAERS Safety Report 8537802-6 (Version None)
Quarter: 2012Q3

REPORT INFORMATION
  Report Type: 
  Country: None (occurrence: None)
  Receive Date: 20120725
  Receipt Date: 20120718
  Transmission Date: 20120928
  Serious: Yes (Hospitalization, Other)
  Sender: FDA-Public Use
  Company Number: US-BAXTER-2012BAX007822

PATIENT
  Sex: Male

DRUGS (1)
  1. DIANEAL [Suspect]
     Indication: PERITONEAL DIALYSIS
     Route: 033
     Dates: end: 20120718

REACTIONS (6)
  - THROMBOSIS [None]
  - PAIN IN EXTREMITY [None]
  - INJURY [None]
  - FALL [None]
  - FAILURE TO THRIVE [None]
  - HYPOTENSION [None]
